FAERS Safety Report 8329558-7 (Version None)
Quarter: 2012Q2

REPORT INFORMATION
  Report Type: 
  Country: None (occurrence: None)
  Receive Date: 20120502
  Receipt Date: 20120430
  Transmission Date: 20120825
  Serious: No
  Sender: FDA-Public Use
  Company Number: US-PFIZER INC-2012063691

PATIENT
  Sex: Male
  Weight: 82.086 kg

DRUGS (4)
  1. METFORMIN [Concomitant]
     Indication: DIABETES MELLITUS
     Dosage: 1000 MG, 2X/DAY
  2. CHANTIX [Suspect]
     Indication: SMOKING CESSATION THERAPY
     Dosage: 0.5 MG, 1X/DAY
     Route: 048
     Dates: start: 20120225, end: 20120101
  3. HYDROCODONE [Concomitant]
     Indication: BACK PAIN
     Dosage: 325 MG, TWO TO FOUR TIMES A DAY AS NEEDED
  4. CHANTIX [Suspect]
     Dosage: 1 MG, 2X/DAY
     Route: 048
     Dates: start: 20120101

REACTIONS (5)
  - ABNORMAL DREAMS [None]
  - LIP SWELLING [None]
  - CHANGE OF BOWEL HABIT [None]
  - CHAPPED LIPS [None]
  - DRY MOUTH [None]
